FAERS Safety Report 6166822-4 (Version None)
Quarter: 2009Q2

REPORT INFORMATION
  Report Type: 
  Country: None (occurrence: None)
  Receive Date: 20090423
  Receipt Date: 20090423
  Transmission Date: 20091009
  Serious: Yes (Other)
  Sender: FDA-Public Use
  Company Number: None

PATIENT
  Age: 27 Year
  Sex: Female
  Weight: 74.8435 kg

DRUGS (1)
  1. MIRENA [Suspect]
     Indication: CONTRACEPTION
     Dates: start: 20080915, end: 20090316

REACTIONS (10)
  - CHEST PAIN [None]
  - FATIGUE [None]
  - HOT FLUSH [None]
  - HYPOAESTHESIA [None]
  - INFLUENZA LIKE ILLNESS [None]
  - MIGRAINE [None]
  - MOOD SWINGS [None]
  - NIGHT SWEATS [None]
  - PALPITATIONS [None]
  - UPPER RESPIRATORY TRACT INFECTION [None]
